FAERS Safety Report 18000317 (Version 1)
Quarter: 2020Q3

REPORT INFORMATION
  Report Type: Spontaneous
  Country: US (occurrence: US)
  Receive Date: 20200709
  Receipt Date: 20200709
  Transmission Date: 20201103
  Serious: Yes (Hospitalization)
  Sender: FDA-Public Use
  Company Number: None

PATIENT
  Age: 68 Year
  Sex: Female

DRUGS (8)
  1. AFINITOR [Suspect]
     Active Substance: EVEROLIMUS
     Indication: BREAST CANCER
     Route: 048
     Dates: start: 20200604
  2. OMEPRAZOLE. [Concomitant]
     Active Substance: OMEPRAZOLE
  3. LOSARTAN POT [Concomitant]
     Active Substance: LOSARTAN POTASSIUM
  4. IBRANCE [Suspect]
     Active Substance: PALBOCICLIB
     Indication: THROMBOCYTOPENIA
     Route: 048
     Dates: start: 20180112, end: 20200618
  5. FLUCONAZOLE. [Concomitant]
     Active Substance: FLUCONAZOLE
  6. LETROZOLE. [Concomitant]
     Active Substance: LETROZOLE
  7. EXEMESTANE. [Concomitant]
     Active Substance: EXEMESTANE
  8. PREDNISONE. [Concomitant]
     Active Substance: PREDNISONE

REACTIONS (4)
  - Cell marker increased [None]
  - Pain [None]
  - Rash [None]
  - Tongue ulceration [None]
